FAERS Safety Report 5817424-8 (Version None)
Quarter: 2008Q3

REPORT INFORMATION
  Report Type: 
  Country: None (occurrence: None)
  Receive Date: 20080722
  Receipt Date: 20080714
  Transmission Date: 20090109
  Serious: Yes (Hospitalization)
  Sender: FDA-Public Use
  Company Number: DE-ELI_LILLY_AND_COMPANY-DE200807002448

PATIENT
  Age: 51 Year
  Sex: Female
  Weight: 84 kg

DRUGS (1)
  1. ZYPREXA [Suspect]
     Indication: SCHIZOPHRENIA, PARANOID TYPE
     Dosage: 15 MG, DAILY (1/D)
     Route: 048
     Dates: start: 20010101, end: 20071229

REACTIONS (6)
  - ANOREXIA [None]
  - DEPRESSED MOOD [None]
  - LISTLESS [None]
  - SINUS TACHYCARDIA [None]
  - SLEEP DISORDER [None]
  - SUICIDE ATTEMPT [None]
